FAERS Safety Report 5208745-0 (Version None)
Quarter: 2007Q1

REPORT INFORMATION
  Report Type: 
  Country: None (occurrence: None)
  Receive Date: 20070111
  Receipt Date: 20070111
  Transmission Date: 20070707
  Serious: No
  Sender: FDA-Public Use
  Company Number: None

PATIENT

DRUGS (1)
  1. GOSERELINE ACETATE IMPLANT 10.8 MG 3- MONTH ASTRA ZENECA [Suspect]
     Indication: PROSTATE CANCER
     Dosage: 10.8 MG EVERY 3 MONTHS SQ
     Route: 058
     Dates: start: 20061215, end: 20061215

REACTIONS (3)
  - DEVICE MALFUNCTION [None]
  - FAILURE OF IMPLANT [None]
  - PHARMACEUTICAL PRODUCT COMPLAINT [None]
